FAERS Safety Report 6503616-1 (Version None)
Quarter: 2009Q4

REPORT INFORMATION
  Report Type: 
  Country: None (occurrence: None)
  Receive Date: 20091217
  Receipt Date: 20091211
  Transmission Date: 20100525
  Serious: Yes (Hospitalization, Disabling, Other)
  Sender: FDA-Public Use
  Company Number: US-ASTRAZENECA-2009SE31409

PATIENT
  Age: 20337 Day
  Sex: Female
  Weight: 101.6 kg

DRUGS (1)
  1. CRESTOR [Suspect]
     Dosage: DAILY
     Route: 048
     Dates: start: 20090713, end: 20090901

REACTIONS (5)
  - BLOOD CREATINE PHOSPHOKINASE [None]
  - MUSCULAR WEAKNESS [None]
  - MYALGIA [None]
  - QUADRIPLEGIA [None]
  - RHABDOMYOLYSIS [None]
